FAERS Safety Report 8562386 (Version 11)
Quarter: 2013Q3

REPORT INFORMATION
  Report Type: Report from Study
  Country: US (occurrence: US)
  Receive Date: 20120515
  Receipt Date: 20130923
  Transmission Date: 20140515
  Serious: Yes (Hospitalization)
  Sender: FDA-Public Use
  Company Number: US-JNJFOC-20120507529

PATIENT
  Age: 17 Year
  Sex: Male
  Weight: 45.9 kg

DRUGS (3)
  1. REMICADE [Suspect]
     Indication: INFLAMMATORY BOWEL DISEASE
     Route: 042
     Dates: start: 20100927, end: 20120119
  2. ADALIMUMAB [Concomitant]
     Dates: start: 20120223
  3. 5-ASA [Concomitant]
     Route: 048

REACTIONS (3)
  - Weight decreased [Recovered/Resolved]
  - Anaemia [Recovered/Resolved]
  - Crohn^s disease [Recovered/Resolved]
